FAERS Safety Report 6079158-7 (Version None)
Quarter: 2009Q1

REPORT INFORMATION
  Report Type: 
  Country: None (occurrence: None)
  Receive Date: 20090216
  Receipt Date: 20090206
  Transmission Date: 20090719
  Serious: Yes (Hospitalization)
  Sender: FDA-Public Use
  Company Number: A0768708A

PATIENT
  Age: 53 Year
  Sex: Female
  Weight: 81.8 kg

DRUGS (4)
  1. AVANDIA [Suspect]
     Dosage: 8MG PER DAY
     Route: 065
     Dates: start: 20040701, end: 20050101
  2. AVANDAMET [Suspect]
     Route: 065
     Dates: start: 20040611, end: 20040701
  3. GLUCOPHAGE [Concomitant]
     Dates: start: 20040101, end: 20050101
  4. METFORMIN HCL [Concomitant]
     Dates: start: 20050101

REACTIONS (2)
  - CARDIAC MURMUR [None]
  - CEREBROVASCULAR ACCIDENT [None]
